FAERS Safety Report 6045936-3 (Version None)
Quarter: 2009Q1

REPORT INFORMATION
  Report Type: 
  Country: None (occurrence: None)
  Receive Date: 20090116
  Receipt Date: 20090112
  Transmission Date: 20090719
  Serious: Yes (Death, Life-Threatening)
  Sender: FDA-Public Use
  Company Number: 2008-187185-NL

PATIENT
  Age: 50 Year
  Sex: Female

DRUGS (2)
  1. MIRTAZAPINE [Suspect]
     Indication: DEPRESSION
     Dosage: 30 MG QD ORAL
     Route: 048
     Dates: start: 20080714, end: 20080729
  2. ATENOLOL [Suspect]
     Indication: ESSENTIAL HYPERTENSION
     Dosage: 25 MG QD

REACTIONS (8)
  - ANOXIC ENCEPHALOPATHY [None]
  - BRONCHOPNEUMONIA [None]
  - COMA [None]
  - ELECTROCARDIOGRAM QT PROLONGED [None]
  - FALL [None]
  - HYPOKINESIA [None]
  - PNEUMONIA ASPIRATION [None]
  - VENTRICULAR FIBRILLATION [None]
